FAERS Safety Report 7347151-X (Version None)
Quarter: 2011Q1

REPORT INFORMATION
  Report Type: 
  Country: None (occurrence: None)
  Receive Date: 20110311
  Receipt Date: 20110307
  Transmission Date: 20110831
  Serious: Yes (Other)
  Sender: FDA-Public Use
  Company Number: JP-PFIZER INC-2011043411

PATIENT
  Age: 85 Year
  Sex: Female

DRUGS (2)
  1. ZYVOX [Suspect]
     Indication: STAPHYLOCOCCAL INFECTION
     Dosage: 1200 MG, 1X/DAY
     Route: 041
     Dates: start: 20110217, end: 20110225
  2. ALBUMIN HUMAN [Concomitant]
     Dosage: 50 ML, ALTERNATE DAY
     Route: 042
     Dates: start: 20110217, end: 20110225

REACTIONS (1)
  - HYPONATRAEMIA [None]
